FAERS Safety Report 6926825-6 (Version None)
Quarter: 2010Q3

REPORT INFORMATION
  Report Type: 
  Country: None (occurrence: None)
  Receive Date: 20100816
  Receipt Date: 20100608
  Transmission Date: 20110219
  Serious: No
  Sender: FDA-Public Use
  Company Number: US-ABBOTT-10P-163-0651249-00

PATIENT
  Sex: Female
  Weight: 104.87 kg

DRUGS (8)
  1. SIMCOR [Suspect]
     Indication: BLOOD CHOLESTEROL INCREASED
     Dosage: 500/20 MG NIGHTLY
     Dates: start: 20100602, end: 20100606
  2. SIMCOR [Suspect]
     Indication: HIGH DENSITY LIPOPROTEIN DECREASED
  3. SIMCOR [Suspect]
     Indication: LOW DENSITY LIPOPROTEIN INCREASED
  4. RISPERDAL [Suspect]
     Indication: ANXIETY
     Dates: start: 20100602, end: 20100603
  5. KLONOPIN [Concomitant]
     Indication: PRODUCT USED FOR UNKNOWN INDICATION
  6. LIPITOR [Concomitant]
     Indication: BLOOD CHOLESTEROL INCREASED
     Dates: start: 20100401, end: 20100501
  7. ESTROGEN [Concomitant]
     Indication: HYSTERECTOMY
  8. LAMICTAL [Concomitant]
     Indication: DEPRESSION

REACTIONS (10)
  - CARDIAC VENTRICULAR DISORDER [None]
  - CHEST PAIN [None]
  - FALL [None]
  - INSOMNIA [None]
  - JOINT SWELLING [None]
  - MUSCLE SPASMS [None]
  - OEDEMA PERIPHERAL [None]
  - PHARYNGEAL OEDEMA [None]
  - SWOLLEN TONGUE [None]
  - TONGUE DISORDER [None]
